FAERS Safety Report 17554168 (Version 1)
Quarter: 2020Q1

REPORT INFORMATION
  Report Type: Spontaneous
  Country: US (occurrence: US)
  Receive Date: 20200318
  Receipt Date: 20200318
  Transmission Date: 20200409
  Serious: No
  Sender: FDA-Public Use
  Company Number: US-ASTRAZENECA-2020SE38398

PATIENT
  Age: 25980 Day
  Sex: Female
  Weight: 115.7 kg

DRUGS (12)
  1. DIGOXIN. [Concomitant]
     Active Substance: DIGOXIN
     Indication: CARDIAC DISORDER
     Route: 048
  2. TOPROL XL [Suspect]
     Active Substance: METOPROLOL SUCCINATE
     Indication: ATRIAL FIBRILLATION
     Dosage: UNKNOWN
     Route: 048
     Dates: start: 2004
  3. BYDUREON [Suspect]
     Active Substance: EXENATIDE
     Indication: TYPE 2 DIABETES MELLITUS
     Route: 058
     Dates: start: 20200217
  4. TOPROL XL [Suspect]
     Active Substance: METOPROLOL SUCCINATE
     Indication: CARDIAC DISORDER
     Dosage: UNKNOWN
     Route: 048
     Dates: start: 2004
  5. TOPROL XL [Suspect]
     Active Substance: METOPROLOL SUCCINATE
     Indication: CAROTID SINUS SYNDROME
     Dosage: UNKNOWN
     Route: 048
     Dates: start: 2004
  6. TOPROL XL [Suspect]
     Active Substance: METOPROLOL SUCCINATE
     Indication: ATRIAL FLUTTER
     Dosage: UNKNOWN
     Route: 048
     Dates: start: 2004
  7. WARFARIN [Concomitant]
     Active Substance: WARFARIN
     Route: 048
  8. CLONIDINE. [Concomitant]
     Active Substance: CLONIDINE
     Route: 065
  9. POTASSIUM [Concomitant]
     Active Substance: POTASSIUM
     Dosage: 20 MEQ
     Route: 048
  10. TRULICIY [Concomitant]
     Route: 065
  11. OMEPRAZOLE. [Suspect]
     Active Substance: OMEPRAZOLE
     Dosage: UNKNOWN UNKNOWN
     Route: 048
     Dates: start: 2004
  12. FENOFIBRATE. [Concomitant]
     Active Substance: FENOFIBRATE
     Route: 048

REACTIONS (2)
  - Injection site erythema [Unknown]
  - Injection site pruritus [Unknown]

NARRATIVE: CASE EVENT DATE: 20200224
